FAERS Safety Report 23739249 (Version 2)
Quarter: 2024Q4

REPORT INFORMATION
  Report Type: Report from Study
  Country: US (occurrence: US)
  Receive Date: 20240413
  Receipt Date: 20241003
  Transmission Date: 20250115
  Serious: Yes (Other)
  Sender: ABBVIE
  Company Number: US-ABBVIE-5715640

PATIENT
  Age: 58 Year
  Sex: Female

DRUGS (2)
  1. HUMIRA [Suspect]
     Active Substance: ADALIMUMAB
     Indication: Product used for unknown indication
     Dosage: CF. FORM STRENGTH: 40 MG?LAST DRUG DOSE ADMINISTRATION: APR 2024
     Route: 058
     Dates: start: 2014
  2. PREDNISONE [Concomitant]
     Active Substance: PREDNISONE
     Indication: Product used for unknown indication
     Dates: start: 2024

REACTIONS (7)
  - Musculoskeletal disorder [Unknown]
  - Irritable bowel syndrome [Unknown]
  - Osteoporosis [Unknown]
  - Condition aggravated [Unknown]
  - Lymphadenopathy [Unknown]
  - Glucose tolerance impaired [Unknown]
  - Illness [Unknown]

NARRATIVE: CASE EVENT DATE: 20140101
